FAERS Safety Report 10340207 (Version 1)
Quarter: 2014Q3

REPORT INFORMATION
  Report Type: Spontaneous
  Country: US (occurrence: None)
  Receive Date: 20140722
  Receipt Date: 20140722
  Transmission Date: 20150326
  Serious: No
  Sender: FDA-Public Use
  Company Number: 1143376

PATIENT
  Age: 49 Year

DRUGS (1)
  1. HYALURONATE SODIUM [Suspect]
     Active Substance: HYALURONATE SODIUM

REACTIONS (1)
  - Adverse drug reaction [None]

NARRATIVE: CASE EVENT DATE: 20130320
